FAERS Safety Report 10271004 (Version 2)
Quarter: 2014Q3

REPORT INFORMATION
  Report Type: Report from Study
  Country: FR (occurrence: FR)
  Receive Date: 20140701
  Receipt Date: 20140701
  Transmission Date: 20150326
  Serious: Yes (Life-Threatening, Hospitalization, Other)
  Sender: FDA-Public Use
  Company Number: FR-BAYER-2013-102707

PATIENT
  Age: 63 Year
  Sex: Male

DRUGS (3)
  1. REGORAFENIB [Suspect]
     Active Substance: REGORAFENIB
     Indication: COLORECTAL CANCER METASTATIC
     Dosage: 160 MG, QD
     Route: 048
     Dates: start: 20130803
  2. REGORAFENIB [Suspect]
     Active Substance: REGORAFENIB
     Indication: COLORECTAL CANCER METASTATIC
     Dosage: 160 MG, QD
     Route: 048
     Dates: start: 20131108
  3. REGORAFENIB [Suspect]
     Active Substance: REGORAFENIB
     Indication: COLORECTAL CANCER METASTATIC
     Dosage: 120 MG DAILY
     Route: 048
     Dates: start: 20130822

REACTIONS (12)
  - Jaundice cholestatic [Not Recovered/Not Resolved]
  - Palmar-plantar erythrodysaesthesia syndrome [Recovered/Resolved]
  - Anaemia [Recovered/Resolved]
  - Palmar-plantar erythrodysaesthesia syndrome [Unknown]
  - Hyperbilirubinaemia [Not Recovered/Not Resolved]
  - Decreased appetite [Recovered/Resolved]
  - Anaemia [Recovered/Resolved]
  - Anaemia [Recovered/Resolved]
  - Decreased appetite [Recovered/Resolved]
  - Ascites [Recovered/Resolved]
  - Abdominal pain upper [Recovered/Resolved]
  - Palmar-plantar erythrodysaesthesia syndrome [Recovered/Resolved]

NARRATIVE: CASE EVENT DATE: 20130815
